FAERS Safety Report 23733903 (Version 1)
Quarter: 2024Q2

REPORT INFORMATION
  Report Type: Spontaneous
  Country: CN (occurrence: CN)
  Receive Date: 20240412
  Receipt Date: 20240412
  Transmission Date: 20240716
  Serious: Yes (Hospitalization, Other)
  Sender: FDA-Public Use
  Company Number: CN-NOVOPROD-1199722

PATIENT
  Age: 90 Year
  Sex: Female
  Weight: 50 kg

DRUGS (4)
  1. NOVORAPID [Suspect]
     Active Substance: INSULIN ASPART
     Indication: Type 2 diabetes mellitus
     Dosage: 30 IU, QD
     Dates: start: 2018
  2. MIGLITOL [Concomitant]
     Active Substance: MIGLITOL
     Indication: Type 2 diabetes mellitus
     Dosage: 1 TABLET, TID.
     Dates: start: 202305
  3. EPALRESTAT [Concomitant]
     Active Substance: EPALRESTAT
     Indication: Type 2 diabetes mellitus
     Dosage: 1 TABLET, TID
     Dates: start: 2014
  4. INSULIN GLARGINE [Concomitant]
     Active Substance: INSULIN GLARGINE
     Indication: Type 2 diabetes mellitus
     Dosage: BEFORE SLEEP

REACTIONS (2)
  - Extremity necrosis [Not Recovered/Not Resolved]
  - Blood glucose fluctuation [Unknown]

NARRATIVE: CASE EVENT DATE: 20230501
